FAERS Safety Report 11535220 (Version 2)
Quarter: 2016Q3

REPORT INFORMATION
  Report Type: Spontaneous
  Country: US (occurrence: US)
  Receive Date: 20150922
  Receipt Date: 20160812
  Transmission Date: 20161109
  Serious: Yes (Other)
  Sender: FDA-Public Use
  Company Number: US-BAYER-2015-426687

PATIENT
  Age: 31 Year
  Sex: Female
  Weight: 89.34 kg

DRUGS (1)
  1. MIRENA [Suspect]
     Active Substance: LEVONORGESTREL
     Indication: CONTRACEPTION
     Dosage: 20 MCG/24HR, CONT
     Route: 015
     Dates: start: 2010

REACTIONS (3)
  - Device difficult to use [None]
  - Device breakage [Unknown]
  - Embedded device [Unknown]

NARRATIVE: CASE EVENT DATE: 20150917
